FAERS Safety Report 17858103 (Version 1)
Quarter: 2020Q2

REPORT INFORMATION
  Report Type: Report from Study
  Country: ES (occurrence: ES)
  Receive Date: 20200604
  Receipt Date: 20200604
  Transmission Date: 20200714
  Serious: Yes (Hospitalization)
  Sender: FDA-Public Use
  Company Number: ES-TEVA-2020-ES-1243857

PATIENT
  Age: 79 Year
  Sex: Male

DRUGS (5)
  1. ACENOCUMAROL (220A) [Concomitant]
     Active Substance: ACENOCOUMAROL
     Indication: CONGENITAL HYPERCOAGULATION
     Route: 048
     Dates: start: 20180409
  2. ALENDRONICO ACIDO (2781A) [Concomitant]
     Indication: OSTEOPOROSIS
     Dosage: 70 MG
     Route: 048
     Dates: start: 20171212
  3. ISONIAZIDA + PIRIDOXINA [Suspect]
     Active Substance: ISONIAZID\PYRIDOXINE
     Indication: TUBERCULOSIS
     Dosage: 300 MG
     Route: 048
     Dates: start: 20191008
  4. FLUCONAZOL (2432A) [Suspect]
     Active Substance: FLUCONAZOLE
     Indication: OESOPHAGEAL CANDIDIASIS
     Dosage: 200 MG
     Route: 048
     Dates: start: 20191105, end: 20191119
  5. PREDNISONA (886A) [Concomitant]
     Active Substance: PREDNISONE
     Indication: POLYCHONDRITIS
     Dosage: 20 MG
     Route: 048
     Dates: start: 20191105, end: 20191111

REACTIONS (1)
  - Neutrophilic dermatosis [Not Recovered/Not Resolved]

NARRATIVE: CASE EVENT DATE: 20191110
